FAERS Safety Report 6176574-X (Version None)
Quarter: 2009Q2

REPORT INFORMATION
  Report Type: 
  Country: None (occurrence: None)
  Receive Date: 20090501
  Receipt Date: 20090420
  Transmission Date: 20091009
  Serious: Yes (Other)
  Sender: FDA-Public Use
  Company Number: DE-ELI_LILLY_AND_COMPANY-DE200903006291

PATIENT
  Sex: Female

DRUGS (3)
  1. BYETTA [Suspect]
     Dosage: 10 UG, UNKNOWN
     Route: 065
     Dates: start: 20080101
  2. BYETTA [Suspect]
     Dosage: 20UG ACCIDENTALLY
     Route: 065
  3. METFORMIN HCL [Concomitant]
     Dosage: 850 UNKNOWN
     Route: 065

REACTIONS (3)
  - BLOOD GLUCOSE DECREASED [None]
  - CIRCULATORY COLLAPSE [None]
  - MEDICATION ERROR [None]
